FAERS Safety Report 11389261 (Version 1)
Quarter: 2015Q3

REPORT INFORMATION
  Report Type: Report from Study
  Country: JP (occurrence: JP)
  Receive Date: 20150817
  Receipt Date: 20150817
  Transmission Date: 20151125
  Serious: Yes (Hospitalization)
  Sender: FDA-Public Use
  Company Number: JP-JNJFOC-20150514010

PATIENT
  Age: 40 Year
  Sex: Male

DRUGS (5)
  1. XEPLION [Suspect]
     Active Substance: PALIPERIDONE PALMITATE
     Indication: SCHIZOPHRENIA, PARANOID TYPE
     Route: 030
     Dates: start: 20150415, end: 20150415
  2. TRIAZOLAM. [Concomitant]
     Active Substance: TRIAZOLAM
     Indication: SCHIZOPHRENIA, PARANOID TYPE
     Route: 048
  3. ETIZOLAM [Concomitant]
     Active Substance: ETIZOLAM
     Indication: SCHIZOPHRENIA, PARANOID TYPE
     Route: 048
  4. XEPLION [Suspect]
     Active Substance: PALIPERIDONE PALMITATE
     Indication: SCHIZOPHRENIA, PARANOID TYPE
     Route: 030
     Dates: start: 20150422, end: 20150422
  5. TASMOLIN [Concomitant]
     Active Substance: BIPERIDEN
     Indication: AKATHISIA
     Route: 048

REACTIONS (2)
  - Suicide attempt [Recovered/Resolved]
  - Akathisia [Unknown]

NARRATIVE: CASE EVENT DATE: 20150420
